FAERS Safety Report 24127576 (Version 1)
Quarter: 2024Q3

REPORT INFORMATION
  Report Type: Spontaneous
  Country: US (occurrence: None)
  Receive Date: 20240723
  Receipt Date: 20240723
  Transmission Date: 20241017
  Serious: No
  Sender: Public
  Company Number: None

PATIENT
  Age: 23 Year
  Sex: Male

DRUGS (2)
  1. OLUMIANT [Suspect]
     Active Substance: BARICITINIB
     Indication: Alopecia
     Dosage: FREQUENCY : DAILY;?
     Route: 048
     Dates: start: 202406
  2. OLUMIANT [Suspect]
     Active Substance: BARICITINIB
     Indication: Alopecia universalis

REACTIONS (3)
  - Therapy interrupted [None]
  - Illness [None]
  - Memory impairment [None]
